FAERS Safety Report 8035801-4 (Version None)
Quarter: 2012Q1

REPORT INFORMATION
  Report Type: 
  Country: None (occurrence: None)
  Receive Date: 20120111
  Receipt Date: 20120102
  Transmission Date: 20120608
  Serious: Yes (Hospitalization)
  Sender: FDA-Public Use
  Company Number: FR-BRISTOL-MYERS SQUIBB COMPANY-16328122

PATIENT
  Age: 53 Year
  Sex: Male

DRUGS (15)
  1. MYCOPHENOLATE MOFETIL (CELLCEPT) [Concomitant]
     Dosage: LONG-TERM THERAPY
  2. NEORAL [Concomitant]
     Dosage: LONG-TERM THERAPY
  3. ONGLYZA [Suspect]
     Indication: DIABETES MELLITUS
     Dosage: INTERRUPTED ON 10NOV11,RESTARTED 28NOV11
     Route: 048
     Dates: start: 20110901
  4. AMLODIPINE BESYLATE [Concomitant]
     Dosage: LONG-TERM THERAPY
  5. ATENOLOL [Concomitant]
     Dosage: LONG-TERM THERAPY
  6. PLAVIX [Concomitant]
     Dosage: LONG-TERM THERAPY
  7. IRBESARTAN [Concomitant]
     Dosage: LONG-TERM THERAPY
  8. NEXIUM [Concomitant]
     Dosage: LONG-TERM THERAPY
  9. CALCIDIA [Concomitant]
     Dosage: LONG-TERM THERAPY
  10. UVEDOSE [Concomitant]
     Dosage: LONG-TERM THERAPY
  11. ALFUZOSIN HCL [Concomitant]
     Dosage: LONG-TERM THERAPY
  12. ATORVASTATIN CALCIUM [Concomitant]
     Dosage: LONG-TERM THERAPY
  13. ARANESP [Concomitant]
     Dosage: LONG-TERM THERAPY
  14. FERROUS SULFATE TAB [Concomitant]
     Dosage: LONG-TERM THERAPY
  15. ACARBOSE [Concomitant]
     Dosage: LONG-TERM THERAPY

REACTIONS (3)
  - GENERALISED OEDEMA [None]
  - HYPOALBUMINAEMIA [None]
  - PROTEINURIA [None]
